FAERS Safety Report 7337403-1 (Version None)
Quarter: 2011Q1

REPORT INFORMATION
  Report Type: 
  Country: None (occurrence: None)
  Receive Date: 20110308
  Receipt Date: 20110225
  Transmission Date: 20110831
  Serious: Yes (Hospitalization)
  Sender: FDA-Public Use
  Company Number: TW-NOVOPROD-324074

PATIENT
  Age: 58 Year
  Sex: Female

DRUGS (3)
  1. ACTRAPID HM [Suspect]
     Dosage: 22 IU, QID
     Route: 058
  2. ACTRAPID HM [Suspect]
     Indication: PRODUCT USED FOR UNKNOWN INDICATION
     Dosage: 22 IU, TID
     Route: 058
  3. MONOTARD [Suspect]
     Indication: PRODUCT USED FOR UNKNOWN INDICATION
     Dosage: 22 IU, QD
     Route: 058

REACTIONS (1)
  - NEUROGLYCOPENIA [None]
